FAERS Safety Report 16112657 (Version 1)
Quarter: 2019Q1

REPORT INFORMATION
  Report Type: Spontaneous
  Country: FR (occurrence: FR)
  Receive Date: 20190325
  Receipt Date: 20190325
  Transmission Date: 20190418
  Serious: Yes (Hospitalization)
  Sender: FDA-Public Use
  Company Number: FR-BAUSCH-BL-2019-008890

PATIENT
  Age: 77 Year
  Sex: Male

DRUGS (6)
  1. LAMISIL [Suspect]
     Active Substance: TERBINAFINE HYDROCHLORIDE
     Indication: SKIN LESION
     Route: 061
     Dates: start: 20051109, end: 20051123
  2. GURONSAN (ASCORBIC ACID (+) CAFFEINE (+) GLUCURONAMIDE) [Suspect]
     Active Substance: ASCORBIC ACID\CAFFEINE\GLUCURONAMIDE
     Indication: PRODUCT USED FOR UNKNOWN INDICATION
     Route: 048
  3. KESTINE [Concomitant]
     Active Substance: EBASTINE
     Indication: PRODUCT USED FOR UNKNOWN INDICATION
     Route: 065
  4. SOLUPRED (PREDNISOLONE METASULFOBENZOATE SODIUM) [Suspect]
     Active Substance: PREDNISOLONE SODIUM METAZOATE
     Indication: PRODUCT USED FOR UNKNOWN INDICATION
     Route: 048
     Dates: start: 20051201, end: 20051228
  5. LOCOID [Suspect]
     Active Substance: HYDROCORTISONE BUTYRATE
     Indication: SKIN LESION
     Route: 061
     Dates: start: 20051109, end: 20051123
  6. DIPROSONE [Suspect]
     Active Substance: BETAMETHASONE DIPROPIONATE
     Indication: SKIN LESION
     Route: 061
     Dates: start: 20051123

REACTIONS (2)
  - Hyperkeratosis [Not Recovered/Not Resolved]
  - Erythrodermic psoriasis [Not Recovered/Not Resolved]

NARRATIVE: CASE EVENT DATE: 200511
